FAERS Safety Report 15730051 (Version 2)
Quarter: 2018Q4

REPORT INFORMATION
  Report Type: Spontaneous
  Country: US (occurrence: US)
  Receive Date: 20181217
  Receipt Date: 20181221
  Transmission Date: 20190205
  Serious: Yes (Other)
  Sender: FDA-Public Use
  Company Number: US-PFIZER INC-2018512260

PATIENT
  Age: 77 Year
  Sex: Male

DRUGS (1)
  1. CHANTIX [Suspect]
     Active Substance: VARENICLINE TARTRATE
     Indication: SMOKING CESSATION THERAPY
     Dosage: UNK (HALF A TABLET FOR 3 DAYS, THEN INCREASED TO HALF A TABLET)

REACTIONS (4)
  - Insomnia [Unknown]
  - Intentional product misuse [Unknown]
  - Pneumonia [Unknown]
  - Respiratory tract congestion [Unknown]
